FAERS Safety Report 11811048 (Version 1)
Quarter: 2015Q4

REPORT INFORMATION
  Report Type: Spontaneous
  Country: CA (occurrence: CA)
  Receive Date: 20151208
  Receipt Date: 20151208
  Transmission Date: 20160305
  Serious: Yes (Other)
  Sender: FDA-Public Use
  Company Number: CA-LPDUSPRD-20150961

PATIENT

DRUGS (4)
  1. ACETAMINOPHEN. [Concomitant]
     Active Substance: ACETAMINOPHEN
     Dosage: DOSE NOT PROVIDED
     Route: 065
     Dates: start: 20151118, end: 20151124
  2. HYDROCORTISONE. [Concomitant]
     Active Substance: HYDROCORTISONE
     Dosage: DOSE NOT PROVIDED
     Route: 065
     Dates: start: 20151118, end: 20151124
  3. BENADRYL [Concomitant]
     Active Substance: DIPHENHYDRAMINE HYDROCHLORIDE
     Dosage: DOSE NOT PROVIDED
     Route: 065
     Dates: start: 20151118, end: 20151124
  4. VENOFER [Suspect]
     Active Substance: IRON SUCROSE
     Dosage: 500 MG OVER 3 HOURS
     Route: 042
     Dates: start: 20151118, end: 20151124

REACTIONS (2)
  - Joint swelling [Unknown]
  - Urticaria [Unknown]

NARRATIVE: CASE EVENT DATE: 20151124
